FAERS Safety Report 11019197 (Version 2)
Quarter: 2015Q2

REPORT INFORMATION
  Report Type: Spontaneous
  Country: US (occurrence: US)
  Receive Date: 20150412
  Receipt Date: 20150525
  Transmission Date: 20150821
  Serious: Yes (Hospitalization, Other)
  Sender: FDA-Public Use
  Company Number: US-JNJFOC-20110309130

PATIENT
  Sex: Female

DRUGS (3)
  1. LEVAQUIN [Suspect]
     Active Substance: LEVOFLOXACIN
     Indication: NEPHROLITHIASIS
     Route: 042
     Dates: start: 20080221
  2. LEVAQUIN [Suspect]
     Active Substance: LEVOFLOXACIN
     Indication: NEPHROLITHIASIS
     Route: 042
     Dates: start: 20080225
  3. LEVAQUIN [Suspect]
     Active Substance: LEVOFLOXACIN
     Indication: ASTHMA
     Route: 048

REACTIONS (6)
  - Diarrhoea [Unknown]
  - Anxiety [Unknown]
  - Depression [Recovering/Resolving]
  - Stevens-Johnson syndrome [Recovering/Resolving]
  - Substance-induced psychotic disorder [Unknown]
  - Vomiting [Unknown]
